FAERS Safety Report 8060932-2 (Version None)
Quarter: 2012Q1

REPORT INFORMATION
  Report Type: 
  Country: None (occurrence: None)
  Receive Date: 20120120
  Receipt Date: 20110328
  Transmission Date: 20120608
  Serious: No
  Sender: FDA-Public Use
  Company Number: US-ALLERGAN-1104323US

PATIENT
  Sex: Female

DRUGS (4)
  1. GENTEAL [Concomitant]
     Indication: DRY EYE
     Dosage: JUST BEFORE BED AND THROUGOUT THE DAY
     Route: 047
  2. EYE DROPS [Concomitant]
     Indication: DRY EYE
     Dosage: UNK
     Route: 047
  3. RESTASIS [Suspect]
     Indication: DRY EYE
     Dosage: 2 GTT, BID
     Route: 047
  4. RESTASIS [Suspect]
     Dosage: 2 GTT, BID
     Route: 047
     Dates: start: 20090101

REACTIONS (1)
  - DRUG INEFFECTIVE [None]
